FAERS Safety Report 7028603-9 (Version None)
Quarter: 2010Q4

REPORT INFORMATION
  Report Type: 
  Country: None (occurrence: None)
  Receive Date: 20101005
  Receipt Date: 20100928
  Transmission Date: 20110411
  Serious: Yes (Hospitalization)
  Sender: FDA-Public Use
  Company Number: US-AMGEN-KDL442151

PATIENT
  Sex: Female
  Weight: 86.3 kg

DRUGS (8)
  1. PROCRIT [Suspect]
     Indication: PRODUCT USED FOR UNKNOWN INDICATION
     Route: 058
     Dates: start: 20091101
  2. TOPROL-XL [Concomitant]
     Route: 048
  3. PLAVIX [Concomitant]
     Route: 048
  4. ASPIRIN [Concomitant]
     Route: 048
  5. ZETIA [Concomitant]
     Route: 048
  6. ZOCOR [Concomitant]
     Route: 048
  7. DARVOCET-N 100 [Concomitant]
     Route: 048
  8. ALPRAZOLAM [Concomitant]
     Route: 048

REACTIONS (2)
  - CYSTITIS [None]
  - KIDNEY INFECTION [None]
